FAERS Safety Report 8605327-5 (Version None)
Quarter: 2012Q3

REPORT INFORMATION
  Report Type: 
  Country: None (occurrence: None)
  Receive Date: 20120820
  Receipt Date: 20120815
  Transmission Date: 20120928
  Serious: Yes (Other)
  Sender: FDA-Public Use
  Company Number: AU-AMGEN-AUSSP2012051394

PATIENT
  Age: 44 Year
  Sex: Female

DRUGS (1)
  1. XGEVA [Suspect]
     Indication: BREAST CANCER METASTATIC
     Dosage: UNK

REACTIONS (5)
  - HYPOAESTHESIA [None]
  - RESPIRATORY DISORDER [None]
  - PAIN IN JAW [None]
  - OSTEOMYELITIS [None]
  - SWELLING FACE [None]
